FAERS Safety Report 9103849 (Version 1)
Quarter: 2013Q1

REPORT INFORMATION
  Report Type: Spontaneous
  Country: US (occurrence: US)
  Receive Date: 20130219
  Receipt Date: 20130219
  Transmission Date: 20140127
  Serious: No
  Sender: FDA-Public Use
  Company Number: US-BAYER-2013-020649

PATIENT
  Age: 83 Year
  Sex: Female
  Weight: 67.57 kg

DRUGS (4)
  1. ALEVE GELCAP [Suspect]
     Indication: BACK PAIN
     Dosage: 2 DF, QD
     Route: 048
     Dates: start: 201301, end: 20130205
  2. ALEVE LIQUID GELS [Suspect]
     Indication: BACK PAIN
     Dosage: 2 DF, QD
     Route: 048
  3. ADVIL [Concomitant]
  4. HYDROCODONE [Concomitant]

REACTIONS (1)
  - Drug ineffective [None]
